FAERS Safety Report 8056732-X (Version None)
Quarter: 2012Q1

REPORT INFORMATION
  Report Type: 
  Country: None (occurrence: None)
  Receive Date: 20120119
  Receipt Date: 20120112
  Transmission Date: 20120608
  Serious: Yes (Hospitalization)
  Sender: FDA-Public Use
  Company Number: SE-JNJFOC-20111207376

PATIENT
  Sex: Male

DRUGS (2)
  1. STELARA [Suspect]
     Indication: PSORIASIS
     Route: 058
  2. ALL OTHER THERAPEUTIC PRODUCTS [Concomitant]
     Indication: PSORIASIS

REACTIONS (3)
  - CARDIAC PACEMAKER INSERTION [None]
  - SICK SINUS SYNDROME [None]
  - POST PROCEDURAL COMPLICATION [None]
